FAERS Safety Report 25845547 (Version 4)
Quarter: 2025Q4

REPORT INFORMATION
  Report Type: Spontaneous
  Country: US (occurrence: US)
  Receive Date: 20250925
  Receipt Date: 20251105
  Transmission Date: 20260119
  Serious: No
  Sender: TOLMAR
  Company Number: US-Tolmar-TLM-2025-06772

PATIENT
  Sex: Male

DRUGS (3)
  1. ELIGARD [Suspect]
     Active Substance: LEUPROLIDE ACETATE
     Indication: Prostate cancer
     Dosage: DOSE NOT ADMINISTERED?GTIN: 00362935461500?SERIAL NUMBER: 1886761034028?EXPIRATION DATE: -OCT-2026;
  2. ELIGARD [Suspect]
     Active Substance: LEUPROLIDE ACETATE
     Dosage: REPLACEMENT DOSE GIVEN
  3. DEVICE [Suspect]
     Active Substance: DEVICE
     Indication: Prostate cancer
     Dosage: GTIN: 00362935461500?SERIAL NUMBER: 1886761034028?EXPIRATION DATE: -OCT-2026; 30-SEP-2026

REACTIONS (4)
  - Intercepted product preparation error [Unknown]
  - Device leakage [Unknown]
  - Device occlusion [Unknown]
  - Wrong technique in product usage process [Unknown]
